FAERS Safety Report 10784602 (Version 1)
Quarter: 2015Q1

REPORT INFORMATION
  Report Type: Spontaneous
  Country: JP (occurrence: JP)
  Receive Date: 20150211
  Receipt Date: 20150211
  Transmission Date: 20150721
  Serious: Yes (Hospitalization)
  Sender: FDA-Public Use
  Company Number: JP-CIPLA LTD.-2015JP00918

PATIENT

DRUGS (5)
  1. LAMOTRIGINE. [Suspect]
     Active Substance: LAMOTRIGINE
     Indication: TONIC CONVULSION
  2. VALPROATE [Suspect]
     Active Substance: VALPROATE SODIUM
     Indication: TONIC CONVULSION
  3. CLONAZEPAM. [Suspect]
     Active Substance: CLONAZEPAM
     Indication: TONIC CONVULSION
  4. RUFINAMIDE [Suspect]
     Active Substance: RUFINAMIDE
     Indication: TONIC CONVULSION
     Dosage: 200 MG/DAY
  5. RUFINAMIDE [Suspect]
     Active Substance: RUFINAMIDE
     Dosage: 400 MG ON DAY 17

REACTIONS (6)
  - Malaise [Recovered/Resolved]
  - Agranulocytosis [Recovered/Resolved]
  - Erythema multiforme [Recovered/Resolved]
  - Decreased appetite [Recovered/Resolved]
  - Pyrexia [Recovered/Resolved]
  - Rash [Recovered/Resolved]
